FAERS Safety Report 8115899-5 (Version None)
Quarter: 2012Q1

REPORT INFORMATION
  Report Type: 
  Country: None (occurrence: None)
  Receive Date: 20120206
  Receipt Date: 20120201
  Transmission Date: 20120608
  Serious: Yes (Other)
  Sender: FDA-Public Use
  Company Number: FR-ROCHE-1036084

PATIENT
  Age: 62 Year
  Sex: Male

DRUGS (4)
  1. PREDNISONE [Suspect]
     Indication: PRODUCT USED FOR UNKNOWN INDICATION
     Route: 048
     Dates: start: 20111028
  2. VEMURAFENIB [Suspect]
     Indication: PRODUCT USED FOR UNKNOWN INDICATION
     Route: 048
     Dates: start: 20111110
  3. PREDNISONE [Suspect]
     Dosage: DOSE REDUCED
     Dates: start: 20111202
  4. PREDNISONE [Suspect]
     Dosage: DOSE REDUCED

REACTIONS (1)
  - HYPERGLYCAEMIA [None]
